FAERS Safety Report 9072733 (Version 1)
Quarter: 2013Q1

REPORT INFORMATION
  Report Type: Spontaneous
  Country: IE (occurrence: IE)
  Receive Date: 20130207
  Receipt Date: 20130207
  Transmission Date: 20140127
  Serious: Yes (Hospitalization, Other)
  Sender: FDA-Public Use
  Company Number: IE-ELI_LILLY_AND_COMPANY-IE201301010488

PATIENT
  Age: 61 Year
  Sex: Female

DRUGS (1)
  1. YENTREVE [Suspect]
     Dosage: 60 MG, UNKNOWN

REACTIONS (2)
  - Eye disorder [Unknown]
  - Retinal detachment [Unknown]
